FAERS Safety Report 5908547-3 (Version None)
Quarter: 2008Q4

REPORT INFORMATION
  Report Type: 
  Country: None (occurrence: None)
  Receive Date: 20081001
  Receipt Date: 20080915
  Transmission Date: 20090506
  Serious: Yes (Hospitalization, Other)
  Sender: FDA-Public Use
  Company Number: GXKR2008US08793

PATIENT
  Age: 7 Year
  Sex: Male

DRUGS (2)
  1. PREDNISONE [Suspect]
     Indication: ASTHMA
     Dosage: 2 MG/KG, QD, ORAL
     Route: 048
  2. ALBUTEROL [Concomitant]

REACTIONS (10)
  - BACK PAIN [None]
  - BONE INFARCTION [None]
  - CHEST PAIN [None]
  - CONCOMITANT DISEASE AGGRAVATED [None]
  - FAT EMBOLISM [None]
  - HAEMOGLOBIN DECREASED [None]
  - LEUKOCYTOSIS [None]
  - LUNG INFILTRATION [None]
  - PRIAPISM [None]
  - VASCULAR OCCLUSION [None]
